FAERS Safety Report 10855753 (Version 3)
Quarter: 2015Q1

REPORT INFORMATION
  Report Type: Spontaneous
  Country: PL (occurrence: PL)
  Receive Date: 20150223
  Receipt Date: 20150309
  Transmission Date: 20150721
  Serious: Yes (Hospitalization, Other)
  Sender: FDA-Public Use
  Company Number: PL-B.I. PHARMACEUTICALS,INC./RIDGEFIELD-2015-BI-08314PN

PATIENT
  Age: 79 Year
  Sex: Female
  Weight: 64 kg

DRUGS (5)
  1. PRADAXA [Suspect]
     Active Substance: DABIGATRAN ETEXILATE MESYLATE
     Indication: ATRIAL FIBRILLATION
     Dosage: 220 MG
     Route: 048
     Dates: start: 20141024
  2. BETALOC ZOK [Concomitant]
     Active Substance: METOPROLOL SUCCINATE
     Indication: ATRIAL FIBRILLATION
     Dosage: 50 MG
     Route: 048
     Dates: start: 20141024
  3. PRADAXA [Suspect]
     Active Substance: DABIGATRAN ETEXILATE MESYLATE
     Indication: PREOPERATIVE CARE
     Dosage: 300 MG
     Route: 048
     Dates: start: 20141107, end: 20141126
  4. RAMIZEK [Concomitant]
     Indication: MYOCARDITIS
     Dosage: 10 MG
     Route: 048
     Dates: start: 20141024
  5. TRIFAS COR [Concomitant]
     Indication: ESSENTIAL HYPERTENSION
     Dosage: 5 MG
     Route: 048
     Dates: start: 20141024

REACTIONS (4)
  - Hyperbilirubinaemia [Not Recovered/Not Resolved]
  - Haemolytic anaemia [Unknown]
  - Yellow skin [Not Recovered/Not Resolved]
  - Jaundice [Unknown]

NARRATIVE: CASE EVENT DATE: 20141110
